FAERS Safety Report 14763325 (Version 7)
Quarter: 2018Q4

REPORT INFORMATION
  Report Type: Spontaneous
  Country: NL (occurrence: NL)
  Receive Date: 20180416
  Receipt Date: 20181120
  Transmission Date: 20190204
  Serious: Yes (Hospitalization, Other)
  Sender: FDA-Public Use
  Company Number: PHHY2017NL191641

PATIENT
  Age: 62 Year
  Sex: Male

DRUGS (11)
  1. FENTANYL. [Interacting]
     Active Substance: FENTANYL
     Dosage: 75 UG, QH
     Route: 062
  2. AMITRIPTYLINE [Suspect]
     Active Substance: AMITRIPTYLINE
     Indication: METASTASES TO BONE
     Dosage: UNK
     Route: 065
  3. PREGABALIN. [Interacting]
     Active Substance: PREGABALIN
     Indication: PAIN
  4. ENZALUTAMIDE [Interacting]
     Active Substance: ENZALUTAMIDE
     Indication: HORMONE-REFRACTORY PROSTATE CANCER
     Dosage: UNK
     Route: 065
  5. FENTANYL. [Interacting]
     Active Substance: FENTANYL
     Indication: PAIN
     Dosage: 75 MG/H, UNK
     Route: 062
  6. FENTANYL. [Interacting]
     Active Substance: FENTANYL
     Dosage: UNK
     Route: 062
  7. PREGABALIN. [Interacting]
     Active Substance: PREGABALIN
     Indication: METASTASES TO BONE
     Dosage: UNK
     Route: 062
  8. FENTANYL. [Interacting]
     Active Substance: FENTANYL
     Indication: METASTASES TO BONE
     Dosage: UNK
     Route: 048
  9. DEXAMETHASONE. [Suspect]
     Active Substance: DEXAMETHASONE
     Indication: CANCER PAIN
     Dosage: 16 MG, QD
     Route: 065
  10. AMITRIPTYLINE [Suspect]
     Active Substance: AMITRIPTYLINE
     Indication: PAIN
  11. AMITRIPTYLINE [Suspect]
     Active Substance: AMITRIPTYLINE
     Indication: DEPRESSION

REACTIONS (8)
  - Pain [Recovering/Resolving]
  - Drug ineffective [Unknown]
  - Spinal cord compression [Recovering/Resolving]
  - Thoracic vertebral fracture [Unknown]
  - Labelled drug-drug interaction medication error [Recovering/Resolving]
  - Cervical vertebral fracture [Unknown]
  - Drug interaction [Recovering/Resolving]
  - Malignant neoplasm progression [Recovering/Resolving]
